FAERS Safety Report 13244806 (Version 1)
Quarter: 2017Q1

REPORT INFORMATION
  Report Type: Spontaneous
  Country: US (occurrence: US)
  Receive Date: 20170217
  Receipt Date: 20170217
  Transmission Date: 20170428
  Serious: Yes (Hospitalization)
  Sender: FDA-Public Use
  Company Number: US-ASTRAZENECA-2017SE17114

PATIENT
  Age: 23827 Day
  Sex: Female
  Weight: 88 kg

DRUGS (21)
  1. SYMBICORT [Suspect]
     Active Substance: BUDESONIDE\FORMOTEROL FUMARATE DIHYDRATE
     Indication: BRONCHOSPASM
     Dosage: 160/4.5 MCG 2 PUFFS TWICE A DAY
     Route: 055
     Dates: start: 20170124
  2. PREDNISONE. [Concomitant]
     Active Substance: PREDNISONE
     Indication: ASTHMA
     Route: 042
     Dates: start: 20170124
  3. SYMBICORT [Suspect]
     Active Substance: BUDESONIDE\FORMOTEROL FUMARATE DIHYDRATE
     Indication: PNEUMONIA ASPIRATION
     Dosage: 160/4.5 MCG 2 PUFFS TWICE A DAY
     Route: 055
     Dates: start: 20170124
  4. TIROSENT [Concomitant]
     Indication: THYROID DISORDER
     Route: 048
     Dates: start: 2013
  5. PROAIR HFA [Concomitant]
     Active Substance: ALBUTEROL SULFATE
     Indication: BRONCHOSPASM
     Dosage: 90.0UG AS REQUIRED
     Route: 055
     Dates: start: 20170124
  6. PREDNISONE. [Concomitant]
     Active Substance: PREDNISONE
     Indication: BRONCHOSPASM
     Route: 048
     Dates: start: 20170124
  7. SYMBICORT [Suspect]
     Active Substance: BUDESONIDE\FORMOTEROL FUMARATE DIHYDRATE
     Indication: OESOPHAGEAL CANDIDIASIS
     Dosage: 160/4.5 MCG 2 PUFFS TWICE A DAY
     Route: 055
     Dates: start: 20170124
  8. FLUTICASONE NASAL SPRAY [Concomitant]
     Active Substance: FLUTICASONE
     Indication: HYPERSENSITIVITY
     Route: 045
     Dates: start: 20170124, end: 20170208
  9. PREDNISONE. [Concomitant]
     Active Substance: PREDNISONE
     Indication: BRONCHOSPASM
     Route: 042
     Dates: start: 20170124
  10. PROAIR HFA [Concomitant]
     Active Substance: ALBUTEROL SULFATE
     Indication: ASTHMA
     Dosage: 90.0UG AS REQUIRED
     Route: 055
     Dates: start: 20170124
  11. ASPIRIN. [Concomitant]
     Active Substance: ASPIRIN
     Indication: COAGULOPATHY
     Route: 048
     Dates: start: 2006
  12. PREDNISONE. [Concomitant]
     Active Substance: PREDNISONE
     Indication: ASTHMA
     Route: 030
     Dates: start: 20170124
  13. ALBUTEROL SULFATE NEBULIZER [Concomitant]
     Indication: ASTHMA
     Dosage: 2.5 MG/3LM VIAL EVERY 4 HOURS AS NEEDED AND TAKES 4 TIMES A DAY
     Route: 055
     Dates: start: 20170124
  14. PREDNISONE. [Concomitant]
     Active Substance: PREDNISONE
     Indication: BRONCHOSPASM
     Route: 030
     Dates: start: 20170124
  15. FISH OIL [Concomitant]
     Active Substance: FISH OIL
     Indication: SUPPLEMENTATION THERAPY
     Route: 048
     Dates: start: 2015
  16. STERILE SALINE [Concomitant]
     Indication: ILL-DEFINED DISORDER
     Dosage: DAILY
     Route: 045
     Dates: start: 20170209
  17. SYMBICORT [Suspect]
     Active Substance: BUDESONIDE\FORMOTEROL FUMARATE DIHYDRATE
     Indication: ASTHMA
     Dosage: 160/4.5 MCG 2 PUFFS TWICE A DAY
     Route: 055
     Dates: start: 20170124
  18. ASPIRIN. [Concomitant]
     Active Substance: ASPIRIN
     Indication: STENT PLACEMENT
     Route: 048
     Dates: start: 2006
  19. MULTIVITAMIN [Concomitant]
     Active Substance: VITAMINS
     Indication: SUPPLEMENTATION THERAPY
     Route: 048
     Dates: start: 2015
  20. ALBUTEROL SULFATE NEBULIZER [Concomitant]
     Indication: BRONCHOSPASM
     Dosage: 2.5 MG/3LM VIAL EVERY 4 HOURS AS NEEDED AND TAKES 4 TIMES A DAY
     Route: 055
     Dates: start: 20170124
  21. PREDNISONE. [Concomitant]
     Active Substance: PREDNISONE
     Indication: ASTHMA
     Route: 048
     Dates: start: 20170124

REACTIONS (4)
  - Polyp [Unknown]
  - Off label use [Not Recovered/Not Resolved]
  - Asthma [Not Recovered/Not Resolved]
  - Product use issue [Not Recovered/Not Resolved]

NARRATIVE: CASE EVENT DATE: 20170124
